FAERS Safety Report 4775417-6 (Version None)
Quarter: 2005Q3

REPORT INFORMATION
  Report Type: 
  Country: None (occurrence: None)
  Receive Date: 20050914
  Receipt Date: 20050312
  Transmission Date: 20060218
  Serious: Yes (Hospitalization)
  Sender: FDA-Public Use
  Company Number: 163-20785-05030337

PATIENT
  Age: 69 Year
  Sex: Male
  Weight: 73 kg

DRUGS (2)
  1. THALOMID [Suspect]
     Indication: CHRONIC LYMPHOCYTIC LEUKAEMIA
     Dosage: 100 MG ON DAY 1 INCREASING 50-100 MG EVERY 1-2 WEEKS TO 1000 MG MAX, QHS, ORAL
     Route: 048
     Dates: start: 20050214, end: 20050310
  2. FLUDARABINE PHOSPHATE [Suspect]
     Indication: CHRONIC LYMPHOCYTIC LEUKAEMIA
     Dosage: 25 MG/M2, OVER 30 MINUTES DAILY FOR 5 DAYS EVERY 28 DAYS, INTRAVENOUS
     Route: 042
     Dates: start: 20050214, end: 20050218

REACTIONS (2)
  - FEBRILE NEUTROPENIA [None]
  - PANCYTOPENIA [None]
